FAERS Safety Report 6890682-7 (Version None)
Quarter: 2010Q3

REPORT INFORMATION
  Report Type: 
  Country: None (occurrence: None)
  Receive Date: 20100731
  Receipt Date: 20090205
  Transmission Date: 20110219
  Serious: No
  Sender: FDA-Public Use
  Company Number: US-PFIZER INC-2008093893

PATIENT
  Sex: Female
  Weight: 65.9 kg

DRUGS (5)
  1. LIPITOR [Suspect]
     Indication: BLOOD CHOLESTEROL ABNORMAL
     Dates: start: 20070101
  2. ACTONEL [Concomitant]
  3. CALCIUM [Concomitant]
  4. VITAMINS [Concomitant]
  5. ACETYLSALICYLIC ACID SRT [Concomitant]

REACTIONS (1)
  - BLOOD CHOLESTEROL INCREASED [None]
